FAERS Safety Report 14246264 (Version 1)
Quarter: 2017Q4

REPORT INFORMATION
  Report Type: Spontaneous
  Country: US (occurrence: US)
  Receive Date: 20171204
  Receipt Date: 20171204
  Transmission Date: 20180321
  Serious: No
  Sender: FDA-Public Use
  Company Number: US-AMGEN-USASP2017178806

PATIENT
  Sex: Female

DRUGS (14)
  1. ENBREL [Suspect]
     Active Substance: ETANERCEPT
     Indication: RHEUMATOID ARTHRITIS
     Dosage: 50 MG, QWK
     Route: 058
  2. DORZOLAMIDE [Concomitant]
     Active Substance: DORZOLAMIDE
     Dosage: 2 %, UNK
  3. METOPROLOL SUCCINATE. [Concomitant]
     Active Substance: METOPROLOL SUCCINATE
     Dosage: 25 MG, UNK
  4. CLOPIDOGREL [Concomitant]
     Active Substance: CLOPIDOGREL BISULFATE
     Dosage: 75 MG, UNK
  5. ATORVASTATIN [Concomitant]
     Active Substance: ATORVASTATIN
     Dosage: 40 MG, UNK
  6. IRON [Concomitant]
     Active Substance: IRON
     Dosage: 325 (65MG)
  7. POTASSIUM [Concomitant]
     Active Substance: POTASSIUM
     Dosage: 99 MG, UNK
  8. PREDNISONE. [Concomitant]
     Active Substance: PREDNISONE
     Dosage: 5 MG, UNK
  9. LUMIGAN [Concomitant]
     Active Substance: BIMATOPROST
     Dosage: 0.01 %, UNK
  10. PANTOPRAZOLE [Concomitant]
     Active Substance: PANTOPRAZOLE
     Dosage: 40 MG, UNK
  11. PERCOCET [Concomitant]
     Active Substance: ACETAMINOPHEN\OXYCODONE HYDROCHLORIDE
     Dosage: 5-325MG
  12. DILTIAZEM HCL [Concomitant]
     Active Substance: DILTIAZEM HYDROCHLORIDE
     Dosage: 240 MG, UNK
  13. MAGNESIUM [Concomitant]
     Active Substance: MAGNESIUM
     Dosage: 250 MG, UNK
  14. GABAPENTIN. [Concomitant]
     Active Substance: GABAPENTIN
     Dosage: 30 MG, UNK

REACTIONS (1)
  - Drug ineffective [Not Recovered/Not Resolved]
